FAERS Safety Report 5604786-X (Version None)
Quarter: 2008Q1

REPORT INFORMATION
  Report Type: 
  Country: None (occurrence: None)
  Receive Date: 20080128
  Receipt Date: 20080117
  Transmission Date: 20080703
  Serious: Yes (Hospitalization)
  Sender: FDA-Public Use
  Company Number: GB-ROCHE-542118

PATIENT
  Age: 51 Year
  Sex: Female
  Weight: 101 kg

DRUGS (2)
  1. CAPECITABINE [Suspect]
     Indication: BREAST CANCER
     Dosage: RECEIVED 3 CYCLES.
     Route: 042
     Dates: start: 20070822
  2. EPIRUBICIN [Suspect]
     Indication: BREAST CANCER
     Dosage: RECEIVED 4 CYCLES.
     Route: 042
     Dates: start: 20070822

REACTIONS (4)
  - PLEURITIC PAIN [None]
  - PULMONARY EMBOLISM [None]
  - PYREXIA [None]
  - URINARY TRACT INFECTION [None]
